FAERS Safety Report 17053244 (Version 1)
Quarter: 2019Q4

REPORT INFORMATION
  Report Type: Spontaneous
  Country: US (occurrence: US)
  Receive Date: 20191120
  Receipt Date: 20191120
  Transmission Date: 20200122
  Serious: No
  Sender: FDA-Public Use
  Company Number: US-NOVOPROD-639576

PATIENT
  Age: 75 Year
  Sex: Male

DRUGS (1)
  1. NOVOLOG MIX 70/30 [Suspect]
     Active Substance: INSULIN ASPART
     Indication: TYPE 2 DIABETES MELLITUS
     Dosage: 30 U, BID (30 UNITS IN AM, 30 UNITS IN PM)
     Route: 058
     Dates: start: 2003

REACTIONS (1)
  - Vision blurred [Not Recovered/Not Resolved]
